FAERS Safety Report 5366881-2 (Version None)
Quarter: 2007Q2

REPORT INFORMATION
  Report Type: 
  Country: None (occurrence: None)
  Receive Date: 20070622
  Receipt Date: 20061220
  Transmission Date: 20071010
  Serious: No
  Sender: FDA-Public Use
  Company Number: US-ASTRAZENECA-2006UW28316

PATIENT
  Sex: Female

DRUGS (3)
  1. RHINOCORT [Suspect]
     Dosage: 120 METER SPRAY UNIT
     Route: 045
  2. ZITHROMAX [Concomitant]
  3. BIRTH CONTROL PILLS [Concomitant]

REACTIONS (1)
  - DRUG SCREEN POSITIVE [None]
